FAERS Safety Report 16975088 (Version 1)
Quarter: 2019Q4

REPORT INFORMATION
  Report Type: Spontaneous
  Country: US (occurrence: US)
  Receive Date: 20191029
  Receipt Date: 20191029
  Transmission Date: 20200122
  Serious: Yes (Hospitalization)
  Sender: FDA-Public Use
  Company Number: None

PATIENT
  Age: 74 Year
  Sex: Male
  Weight: 56.7 kg

DRUGS (17)
  1. HEPARIN LOCK 500 UN-5 ML SYG 30X5 ML [Suspect]
     Active Substance: HEPARIN SODIUM
  2. HEPARIN SOD 30 UN-3 ML/12 ML SYG 60X3 ML [Suspect]
     Active Substance: HEPARIN SODIUM
  3. HEPARIN SODIUM 5000 UN PFS 24X1ML [Suspect]
     Active Substance: HEPARIN SODIUM
  4. HEPARIN LF 30 UN-3 ML SYG 30X3 ML [Suspect]
     Active Substance: HEPARIN SODIUM
  5. HEPARIN 5% DEXTROSE 50UN-ML BAG 24X500ML [Suspect]
     Active Substance: HEPARIN SODIUM
  6. HEPARIN SOD 5000 UN-ML MDV 25X1 ML [Suspect]
     Active Substance: HEPARIN SODIUM
  7. HEPARIN SOD-D5W 25 MU BAG 24X500ML [Suspect]
     Active Substance: HEPARIN SODIUM
  8. HEPARIN SOD 1000 UN-ML SDV 25X10 ML [Suspect]
     Active Substance: HEPARIN SODIUM
  9. HEPARIN SOD-NS 2000 UN-ML BAG 12X1000 ML [Suspect]
     Active Substance: HEPARIN SODIUM
  10. HEPARIN PF 2000 UN-2 ML VL 25X2 ML [Suspect]
     Active Substance: HEPARIN SODIUM
  11. HEPARIN SODIUM 1000 UN-ML MDV 25X10 ML [Suspect]
     Active Substance: HEPARIN SODIUM
  12. HEPARIN LOCK 500 UN-5 ML/12ML SYG 60X5ML [Suspect]
     Active Substance: HEPARIN SODIUM
  13. HEPARIN SOD 30 UN-3 ML/6 ML SYG 60X3 ML [Suspect]
     Active Substance: HEPARIN SODIUM
  14. HEPARIN SODIUM 5000UN MDV 25X1ML [Suspect]
     Active Substance: HEPARIN SODIUM
  15. HEPARIN SOD-NS 2 UN-ML BAG 18X500 ML [Suspect]
     Active Substance: HEPARIN SODIUM
  16. HEPARIN SOD 5000 UN-ML VL 25X1 ML [Suspect]
     Active Substance: HEPARIN SODIUM
  17. HEPARIN SODIUM 5000 UN-ML MDV 25X1 ML [Suspect]
     Active Substance: HEPARIN SODIUM

REACTIONS (5)
  - Cardiac operation [None]
  - Cerebral ischaemia [None]
  - Cerebrovascular accident [None]
  - Heparin-induced thrombocytopenia [None]
  - Post procedural complication [None]

NARRATIVE: CASE EVENT DATE: 20190625
